FAERS Safety Report 21619813 (Version 1)
Quarter: 2022Q4

REPORT INFORMATION
  Report Type: Spontaneous
  Country: US (occurrence: US)
  Receive Date: 20221121
  Receipt Date: 20221121
  Transmission Date: 20230113
  Serious: Yes (Hospitalization, Other)
  Sender: FDA-Public Use
  Company Number: US-KVK-TECH, INC-20221100095

PATIENT
  Age: 73 Year
  Sex: Male

DRUGS (12)
  1. OXYBUTYNIN CHLORIDE [Suspect]
     Active Substance: OXYBUTYNIN CHLORIDE
     Indication: Urinary incontinence
     Dosage: UNK, UNKNOWN
     Route: 065
  2. GLIPIZIDE [Concomitant]
     Active Substance: GLIPIZIDE
  3. MODAFINIL [Concomitant]
     Active Substance: MODAFINIL
  4. APIXABAN [Concomitant]
     Active Substance: APIXABAN
  5. AMLODIPINE [Concomitant]
     Active Substance: AMLODIPINE BESYLATE
  6. METOPROLOL [Concomitant]
     Active Substance: METOPROLOL
  7. ATORVASTATIN [Concomitant]
     Active Substance: ATORVASTATIN
  8. OMEPRAZOLE [Concomitant]
     Active Substance: OMEPRAZOLE
  9. TAMSULOSIN [Concomitant]
     Active Substance: TAMSULOSIN
  10. TRAZODONE [Concomitant]
     Active Substance: TRAZODONE HYDROCHLORIDE
  11. RISPERIDONE [Concomitant]
     Active Substance: RISPERIDONE
     Indication: Agitation
  12. MIRABEGRON [Concomitant]
     Active Substance: MIRABEGRON
     Indication: Hypertonic bladder
     Dosage: 25 MILLIGRAM, QD

REACTIONS (2)
  - Delirium [Recovered/Resolved]
  - Condition aggravated [Recovered/Resolved]
